FAERS Safety Report 5140618-4 (Version None)
Quarter: 2006Q4

REPORT INFORMATION
  Report Type: 
  Country: None (occurrence: None)
  Receive Date: 20061025
  Receipt Date: 20061009
  Transmission Date: 20070319
  Serious: Yes (Life-Threatening, Hospitalization)
  Sender: FDA-Public Use
  Company Number: DSA_28836_2006

PATIENT
  Age: 56 Year
  Sex: Male

DRUGS (13)
  1. LORAZEPAM [Suspect]
     Dosage: 25 MG QD PO
     Route: 048
     Dates: start: 20051230
  2. CATAPRES [Suspect]
     Dosage: 3.5 ML QD
     Dates: start: 20051230
  3. AUGMENTIN '125' [Concomitant]
  4. NEXIUM [Concomitant]
  5. DOMINAL [Suspect]
     Dosage: 80 MG QD
     Dates: start: 20051230
  6. HALDOL [Suspect]
     Dosage: 10 MG QD
     Dates: start: 20051230
  7. TRILEPTAL [Suspect]
     Dosage: 1200 MG QD
     Dates: start: 20051230
  8. OMNIFLORA [Concomitant]
  9. CEVITOL [Concomitant]
  10. MUCOSOLVAN [Concomitant]
  11. LOVENOX [Concomitant]
  12. NUTRISON [Concomitant]
  13. THIAMINE HYROCHLORIDE [Concomitant]

REACTIONS (1)
  - ACUTE MYOCARDIAL INFARCTION [None]
